FAERS Safety Report 10237175 (Version 1)
Quarter: 2014Q1

REPORT INFORMATION
  Report Type: Spontaneous
  Country: US (occurrence: None)
  Receive Date: 20140306
  Receipt Date: 20140306
  Transmission Date: 20141002
  Serious: Yes (Hospitalization)
  Sender: FDA-Public Use
  Company Number: 163-21880-13124912

PATIENT
  Age: 75 Year
  Sex: Male
  Weight: 94 kg

DRUGS (26)
  1. REVLIMID (LENALIDOMIDE) (CAPSULES) [Suspect]
     Indication: PLASMA CELL MYELOMA
     Dosage: 10 MG, 21 IN 28 D, PO
     Route: 048
     Dates: start: 20130314
  2. MLN9708 [Suspect]
     Indication: PLASMA CELL MYELOMA
     Route: 048
     Dates: start: 20130314
  3. DEXAMETHASONE (DEXAMETHASONE) (UNKNOWN) [Suspect]
     Indication: PLASMA CELL MYELOMA
     Dosage: 40 MG, 4 IN 28 D, PO
     Route: 048
     Dates: start: 20130314, end: 201312
  4. COUMADIN (WARFARIN SODIUM) (TABLETS) [Concomitant]
  5. SOTALOL (SOTALOL) (UNKNOWN) [Concomitant]
  6. ASPIRIINE (ACETYLSALICYLIC ACID) (TABLETS) [Concomitant]
  7. RANEXA (RANOLAZINE) (TABLETS) [Concomitant]
  8. TERAZOSIN (TERAZOSIN) (CAPSULES) [Concomitant]
  9. SIMVASTATIN (SIMVASTATIN) (UNKNOWN) [Concomitant]
  10. ALDACTONE (SPIRONOLACTONE) (UNKNOWN) [Concomitant]
  11. LYRICA (PREGABALIN) (CAPSULES) [Concomitant]
  12. XANAX (ALPRAZOLAM) (UNKNOWN) [Concomitant]
  13. FINASTERIDE (FINASTERIDE) (TABLETS) [Concomitant]
  14. ZOCOR (SIMVASTATIN) (UNKNOWN) [Concomitant]
  15. AREDIA (PAMIDRONATE DISODIUM) (UNKNOWN) [Concomitant]
  16. FLONASE (FLUTICASONE PROPIONATE) (SPRAY (NOT INHALATION) ) [Concomitant]
  17. ANUSOL-HC (ANUSOL-HC) (25 MILLIGRAM, SUPPOSITORY) [Concomitant]
  18. SPIRONOLACTONE (SPIRONOLACTONE) (TABLETS) [Concomitant]
  19. LACTOBACILLUS ACIDOPHILUS AND BULGARICUS (LACTOBACILUS BULGARICUS) (CHEWABLE TABLET) [Concomitant]
  20. MUCINEX (GUAIFENESIN) (TABLETS) [Concomitant]
  21. DUONEB (COMBIVENT) (SOLUTION) [Concomitant]
  22. PANTOPRAZOLE (PANTOPRAZOLE) (UNKNOWN) [Concomitant]
  23. PRAVASTATIN (PRAVASTATIN) (UNKNOWN) [Concomitant]
  24. BENZONATATE (BENZONATATE) (CAPSULES) [Concomitant]
  25. HYCODAN (HYDROCODONE BITARTRATE) (UNKNOWN) [Concomitant]
  26. NORCO (VICODIN) (TABLETS) [Concomitant]

REACTIONS (1)
  - Pulmonary embolism [None]
